FAERS Safety Report 22319862 (Version 1)
Quarter: 2023Q2

REPORT INFORMATION
  Report Type: Spontaneous
  Country: US (occurrence: US)
  Receive Date: 20230515
  Receipt Date: 20230515
  Transmission Date: 20230722
  Serious: Yes (Other)
  Sender: FDA-Public Use
  Company Number: US-TEVA-2023-US-2886064

PATIENT
  Sex: Female

DRUGS (1)
  1. NUVIGIL [Suspect]
     Active Substance: ARMODAFINIL
     Indication: Sleep apnoea syndrome
     Dosage: 50 MG
     Route: 065

REACTIONS (2)
  - Autoimmune disorder [Unknown]
  - Sleep apnoea syndrome [Unknown]
